FAERS Safety Report 25836811 (Version 2)
Quarter: 2025Q4

REPORT INFORMATION
  Report Type: Spontaneous
  Country: US (occurrence: US)
  Receive Date: 20250923
  Receipt Date: 20251114
  Transmission Date: 20260117
  Serious: Yes (Other)
  Sender: Day One Biopharmaceuticals
  Company Number: US-Day One Biopharmaceuticals Inc.-2025US001477

PATIENT

DRUGS (4)
  1. OJEMDA [Suspect]
     Active Substance: TOVORAFENIB
     Indication: Ganglioglioma
     Dosage: 600 MG
     Route: 065
     Dates: start: 202506, end: 2025
  2. DABRAFENIB [Suspect]
     Active Substance: DABRAFENIB
     Dosage: DOSE NOT REPORTED
     Route: 065
  3. TRAMETINIB [Suspect]
     Active Substance: TRAMETINIB
     Dosage: DOSE NOT REPORTED
     Route: 065
  4. FERROUS SULFATE [Concomitant]
     Active Substance: FERROUS SULFATE
     Indication: Product used for unknown indication
     Dosage: DOSE NOT REPORTED
     Route: 065

REACTIONS (1)
  - Uveitis [Recovering/Resolving]

NARRATIVE: CASE EVENT DATE: 20250901
